FAERS Safety Report 8389179-7 (Version None)
Quarter: 2012Q2

REPORT INFORMATION
  Report Type: 
  Country: None (occurrence: None)
  Receive Date: 20120528
  Receipt Date: 20120525
  Transmission Date: 20120825
  Serious: Yes (Hospitalization, Other)
  Sender: FDA-Public Use
  Company Number: PHHY2012ES044843

PATIENT
  Age: 55 Year
  Sex: Female

DRUGS (3)
  1. MYFORTIC [Suspect]
     Indication: LIVER TRANSPLANT
  2. VIREAD [Interacting]
     Dates: start: 20100120
  3. PROGRAF [Interacting]
     Indication: LIVER TRANSPLANT
     Dates: start: 20120303

REACTIONS (2)
  - DRUG INTERACTION [None]
  - RENAL IMPAIRMENT [None]
